FAERS Safety Report 6569582-8 (Version None)
Quarter: 2010Q1

REPORT INFORMATION
  Report Type: 
  Country: None (occurrence: None)
  Receive Date: 20100204
  Receipt Date: 20100128
  Transmission Date: 20100710
  Serious: Yes (Death)
  Sender: FDA-Public Use
  Company Number: IT-NOVOPROD-293087

PATIENT
  Sex: Male

DRUGS (1)
  1. NORDITROPIN [Suspect]
     Indication: BLOOD GROWTH HORMONE DECREASED
     Dosage: 1 MG, QD
     Dates: start: 20090126, end: 20090408

REACTIONS (1)
  - BRAIN NEOPLASM MALIGNANT [None]
